FAERS Safety Report 7369683-0 (Version None)
Quarter: 2011Q1

REPORT INFORMATION
  Report Type: 
  Country: None (occurrence: None)
  Receive Date: 20110317
  Receipt Date: 20110317
  Transmission Date: 20110831
  Serious: Yes (Disabling)
  Sender: FDA-Public Use
  Company Number: None

PATIENT
  Sex: Male
  Weight: 71.2147 kg

DRUGS (1)
  1. NEXIUM [Suspect]
     Indication: GASTRITIS
     Dosage: 1 OD PO
     Route: 048
     Dates: start: 19800101, end: 20100101

REACTIONS (2)
  - SPINAL FRACTURE [None]
  - BODY HEIGHT DECREASED [None]
